FAERS Safety Report 8060871-7 (Version None)
Quarter: 2012Q1

REPORT INFORMATION
  Report Type: 
  Country: None (occurrence: None)
  Receive Date: 20120120
  Receipt Date: 20110225
  Transmission Date: 20120608
  Serious: No
  Sender: FDA-Public Use
  Company Number: US-ALLERGAN-1102793US

PATIENT
  Age: 71 Year
  Sex: Female

DRUGS (6)
  1. MAXALT                             /01406501/ [Concomitant]
     Indication: MIGRAINE
  2. RESTASIS [Suspect]
     Indication: DRY EYE
     Dosage: 2 GTT, BID
     Route: 047
     Dates: start: 20110117, end: 20110123
  3. FIORINAL [Concomitant]
     Indication: MIGRAINE
     Dosage: UNK
     Route: 048
  4. SINEMET [Concomitant]
     Dosage: 1.5 TAB QD
     Route: 048
  5. REQUIP [Concomitant]
     Dosage: UNK
     Route: 048
  6. SINEMET [Concomitant]
     Dosage: 0.5 TAB 4X QD

REACTIONS (1)
  - EYE IRRITATION [None]
